FAERS Safety Report 13895339 (Version 1)
Quarter: 2017Q3

REPORT INFORMATION
  Report Type: Spontaneous
  Country: FR (occurrence: FR)
  Receive Date: 20170823
  Receipt Date: 20170823
  Transmission Date: 20171127
  Serious: Yes (Hospitalization)
  Sender: FDA-Public Use
  Company Number: FR-ROCHE-1979250

PATIENT
  Age: 67 Year
  Sex: Female

DRUGS (9)
  1. MABTHERA [Suspect]
     Active Substance: RITUXIMAB
     Indication: VASCULITIS
     Dosage: 20/MAY/2017, 27/MAY/2017, 03/JUN/2017 AND 10/JUN/2017
     Route: 042
     Dates: start: 20170520, end: 20170610
  2. LEVOTHYROX [Concomitant]
     Active Substance: LEVOTHYROXINE
     Dosage: LONG TERM TREATMENT SCORED TABLET
     Route: 048
  3. COAPROVEL [Concomitant]
     Active Substance: HYDROCHLOROTHIAZIDE\IRBESARTAN
     Dosage: LONG TERM TREATMENT?150MG/12.5MG
     Route: 048
  4. FLECAINE [Concomitant]
     Active Substance: FLECAINIDE
     Dosage: LONG TERM TREATMENT
     Route: 048
  5. BACTRIM [Suspect]
     Active Substance: SULFAMETHOXAZOLE\TRIMETHOPRIM
     Indication: PRODUCT USED FOR UNKNOWN INDICATION
     Dosage: 15-JUN-2017
     Route: 048
     Dates: start: 20160616, end: 20170703
  6. ENDOXAN [Suspect]
     Active Substance: CYCLOPHOSPHAMIDE
     Indication: VASCULITIS
     Route: 042
     Dates: start: 20170517, end: 20170602
  7. ZELITREX [Suspect]
     Active Substance: VALACYCLOVIR HYDROCHLORIDE
     Indication: PRODUCT USED FOR UNKNOWN INDICATION
     Dosage: COATED TABLET??ON 20/JUN/2017
     Route: 048
     Dates: start: 20170615, end: 20170703
  8. CORTANCYL [Concomitant]
     Active Substance: PREDNISONE
     Indication: VASCULITIS
     Dosage: FOR 3 DAYS THEN GRADUAL DECREASE
     Route: 048
  9. KARDEGIC [Concomitant]
     Active Substance: ASPIRIN LYSINE
     Dosage: LONG TERM TREATMENT?POWDER FOR ORAL SOLUTION IN DOSE-PACKET
     Route: 048

REACTIONS (3)
  - Off label use [Unknown]
  - Intentional product use issue [Unknown]
  - Agranulocytosis [Recovered/Resolved]

NARRATIVE: CASE EVENT DATE: 20170703
